FAERS Safety Report 19497915 (Version 4)
Quarter: 2021Q3

REPORT INFORMATION
  Report Type: Report from Study
  Country: US (occurrence: US)
  Receive Date: 20210706
  Receipt Date: 20210727
  Transmission Date: 20211014
  Serious: Yes (Other)
  Sender: FDA-Public Use
  Company Number: US-B.I. PHARMACEUTICALS,INC./RIDGEFIELD-2021-BI-113064

PATIENT
  Age: 80 Year
  Sex: Female

DRUGS (13)
  1. OFEV [Suspect]
     Active Substance: NINTEDANIB
     Indication: INTERSTITIAL LUNG DISEASE
     Dosage: 150MG TWICE A DAY
     Route: 048
     Dates: start: 202012, end: 20210701
  2. VITAMIN D [COLECALCIFEROL] [Concomitant]
     Active Substance: CHOLECALCIFEROL
     Indication: MUSCLE SPASMS
     Dosage: UNKWONW DOSAGE; ONCE A DAY
  3. LISINOPRIL. [Concomitant]
     Active Substance: LISINOPRIL
     Indication: OCULAR HYPERTENSION
     Dosage: 0.5MG ONE DROP IN EACH EYE DAILY
  4. CRESTOR [Concomitant]
     Active Substance: ROSUVASTATIN CALCIUM
     Indication: BLOOD CHOLESTEROL ABNORMAL
     Dosage: 10MG A DAY
  5. CARVEDILOL. [Concomitant]
     Active Substance: CARVEDILOL
     Indication: CARDIAC DISORDER
     Dosage: 12.5MG TWICE A DAY
  6. ASPIRIN [ACETYLSALICYLIC ACID] [Concomitant]
     Active Substance: ASPIRIN
     Indication: CARDIAC DISORDER
     Dosage: UNKNOWN DOSAGE; ONCE A DAY
  7. LOSARTAN. [Concomitant]
     Active Substance: LOSARTAN
     Indication: CARDIAC DISORDER
     Dosage: 100MG ONCE A DAY
  8. NEXIUM [Concomitant]
     Active Substance: ESOMEPRAZOLE MAGNESIUM
     Indication: GASTROOESOPHAGEAL REFLUX DISEASE
     Dosage: DOSE UNKNOWN; ONCE A DAY
  9. MURO 128 [Concomitant]
     Active Substance: SODIUM CHLORIDE
     Indication: OCULAR HYPERTENSION
     Dosage: UNKNOWN DOSAGE; ONE DROP IN EACH EYE DAILY
  10. PRESERVISION [Concomitant]
     Active Substance: MINERALS\VITAMINS
     Indication: OCULAR HYPERTENSION
     Dosage: UNKNOWN DOSAGE; ONCE DAILY
  11. OFEV [Suspect]
     Active Substance: NINTEDANIB
     Dosage: OFEV 100 MG BID
     Route: 048
     Dates: start: 20210701
  12. OXYGEN. [Concomitant]
     Active Substance: OXYGEN
     Indication: PULMONARY FIBROSIS
     Dosage: 2 LITER PER MINUTE AT ALL TIMES
  13. OFEV [Suspect]
     Active Substance: NINTEDANIB
     Indication: PULMONARY FIBROSIS
     Dosage: 150MG QD
     Route: 048
     Dates: start: 20210707

REACTIONS (8)
  - Nausea [Not Recovered/Not Resolved]
  - Depression [Not Recovered/Not Resolved]
  - Diarrhoea [Not Recovered/Not Resolved]
  - Quality of life decreased [Not Recovered/Not Resolved]
  - Oxygen consumption increased [Not Recovered/Not Resolved]
  - Haemorrhoids [Not Recovered/Not Resolved]
  - Eating disorder [Not Recovered/Not Resolved]
  - Diarrhoea [Recovered/Resolved]

NARRATIVE: CASE EVENT DATE: 202012
